FAERS Safety Report 7721582-8 (Version None)
Quarter: 2011Q3

REPORT INFORMATION
  Report Type: 
  Country: None (occurrence: None)
  Receive Date: 20110831
  Receipt Date: 20110816
  Transmission Date: 20111222
  Serious: Yes (Hospitalization)
  Sender: FDA-Public Use
  Company Number: US-GLAXOSMITHKLINE-B0743229A

PATIENT
  Age: 49 Year
  Sex: Female

DRUGS (12)
  1. MORPHINE SULFATE [Concomitant]
  2. DULOXETIME HYDROCHLORIDE [Concomitant]
  3. NICOTINE [Suspect]
     Indication: EX-TOBACCO USER
     Dosage: 7MG AT NIGHT
     Route: 065
  4. DIHYDROERGOTAMINE [Suspect]
     Indication: HEADACHE
     Dosage: 1MG SINGLE DOSE
     Route: 042
  5. HYDROCODONE BITARTRATE + ACETAMINOPHEN [Concomitant]
  6. AMANTADINE HCL [Concomitant]
  7. VERAPAMIL [Suspect]
     Indication: HYPERTENSION
     Dosage: 120MG AT NIGHT
     Route: 048
  8. GABAPENTIN [Concomitant]
  9. ATIVAN [Concomitant]
  10. HALOPERIDOL [Concomitant]
  11. IMMUNOSUPPRESSIVE [Concomitant]
  12. FENTANYL [Concomitant]

REACTIONS (5)
  - PRINZMETAL ANGINA [None]
  - DRUG INTERACTION [None]
  - CHEST DISCOMFORT [None]
  - CHEST PAIN [None]
  - NAUSEA [None]
